FAERS Safety Report 7276448-7 (Version None)
Quarter: 2011Q1

REPORT INFORMATION
  Report Type: 
  Country: None (occurrence: None)
  Receive Date: 20110131
  Receipt Date: 20110114
  Transmission Date: 20110831
  Serious: Yes (Other)
  Sender: FDA-Public Use
  Company Number: 083-21880-11011497

PATIENT
  Age: 74 Year
  Sex: Male

DRUGS (1)
  1. REVLIMID [Suspect]
     Indication: MYELODYSPLASTIC SYNDROME
     Dosage: (10 MG, PO) (5 MG, PO)
     Route: 048
     Dates: start: 20090201

REACTIONS (4)
  - ANAEMIA MACROCYTIC [None]
  - THROMBOCYTOPENIA [None]
  - NEUTROPENIA [None]
  - BIOPSY BONE MARROW ABNORMAL [None]
